FAERS Safety Report 13707737 (Version 2)
Quarter: 2017Q3

REPORT INFORMATION
  Report Type: Report from Study
  Country: US (occurrence: US)
  Receive Date: 20170630
  Receipt Date: 20170802
  Transmission Date: 20171127
  Serious: Yes (Other)
  Sender: FDA-Public Use
  Company Number: US-NAPPMUNDI-USA-2013-0105757

PATIENT
  Age: 44 Year
  Sex: Male

DRUGS (2)
  1. OXYCODONE HYDROCHLORIDE. [Suspect]
     Active Substance: OXYCODONE HYDROCHLORIDE
     Indication: PRODUCT USED FOR UNKNOWN INDICATION
     Dosage: 20 MG, Q12H
     Route: 048
  2. OXYCODONE HYDROCHLORIDE. [Suspect]
     Active Substance: OXYCODONE HYDROCHLORIDE
     Dosage: UNK
     Route: 048
     Dates: start: 201305

REACTIONS (8)
  - Hyperhidrosis [Unknown]
  - Chest discomfort [Unknown]
  - Tremor [Unknown]
  - Diarrhoea [Unknown]
  - Irritability [Unknown]
  - Influenza like illness [Unknown]
  - Nausea [Unknown]
  - Spinal operation [Unknown]

NARRATIVE: CASE EVENT DATE: 20170129
